FAERS Safety Report 4598736-5 (Version None)
Quarter: 2005Q1

REPORT INFORMATION
  Report Type: 
  Country: None (occurrence: None)
  Receive Date: 20050304
  Receipt Date: 20050215
  Transmission Date: 20050727
  Serious: Yes (Hospitalization)
  Sender: FDA-Public Use
  Company Number: JP-GLAXOSMITHKLINE-B0372028A

PATIENT
  Age: 80 Year
  Sex: Male

DRUGS (7)
  1. ZANTAC [Suspect]
     Dosage: 150MG PER DAY
     Route: 048
     Dates: start: 20020401
  2. CALBLOCK [Suspect]
     Dosage: 16MG PER DAY
     Route: 048
     Dates: start: 20041110
  3. PANALDINE [Suspect]
     Dosage: 100MG TWICE PER DAY
     Route: 048
     Dates: start: 20041208, end: 20050202
  4. PROMAC [Concomitant]
     Dosage: .5G TWICE PER DAY
     Route: 048
  5. CARDENALIN [Concomitant]
     Dosage: 2MG PER DAY
     Route: 048
  6. ERYTHROCIN [Concomitant]
     Dosage: 600MG PER DAY
     Route: 048
  7. FORSENID [Concomitant]
     Dosage: 24MG PER DAY
     Route: 048

REACTIONS (2)
  - CEREBRAL INFARCTION [None]
  - HEPATIC FUNCTION ABNORMAL [None]
